FAERS Safety Report 4498497-4 (Version None)
Quarter: 2004Q4

REPORT INFORMATION
  Report Type: 
  Country: None (occurrence: None)
  Receive Date: 20041105
  Receipt Date: 20041028
  Transmission Date: 20050328
  Serious: Yes (Death)
  Sender: FDA-Public Use
  Company Number: B0350030A

PATIENT

DRUGS (6)
  1. ALKERAN [Suspect]
  2. CARMUSTINE [Suspect]
  3. ETOPOSIDE [Concomitant]
     Dosage: 100 MG/M2 /TWICE PER DAY
  4. CYTARABINE [Suspect]
     Dosage: 200 MG/M2 / TWICE PER DAY /
  5. STEM CELL TRANSPLANT [Concomitant]
  6. GRANUYLOCYTE COL. STIM. FACT [Concomitant]

REACTIONS (2)
  - HEPATIC FAILURE [None]
  - HEPATIC STEATOSIS [None]
